FAERS Safety Report 5838838-6 (Version None)
Quarter: 2008Q3

REPORT INFORMATION
  Report Type: 
  Country: None (occurrence: None)
  Receive Date: 20080801
  Receipt Date: 20080619
  Transmission Date: 20090109
  Serious: Yes (Hospitalization)
  Sender: FDA-Public Use
  Company Number: 571442

PATIENT
  Age: 53 Year
  Sex: Female
  Weight: 65.8 kg

DRUGS (3)
  1. BONIVA [Suspect]
     Indication: DRUG USE FOR UNKNOWN INDICATION
     Dosage: INTRAVENOUS
     Route: 042
  2. CELEBREX [Concomitant]
  3. CALCIUM/VITAMIN D (CALCIUM/VITAMIN D) [Concomitant]

REACTIONS (4)
  - ACUTE PHASE REACTION [None]
  - CHEST PAIN [None]
  - MUSCULOSKELETAL CHEST PAIN [None]
  - MYALGIA [None]
